FAERS Safety Report 18635861 (Version 2)
Quarter: 2021Q1

REPORT INFORMATION
  Report Type: Report from Study
  Country: BR (occurrence: BR)
  Receive Date: 20201218
  Receipt Date: 20210301
  Transmission Date: 20210419
  Serious: Yes (Life-Threatening, Hospitalization)
  Sender: FDA-Public Use
  Company Number: BR-TAKEDA-2020TUS044925

PATIENT
  Age: 6 Year
  Sex: Male
  Weight: 27.2 kg

DRUGS (5)
  1. DEXCLORFENIRAMINA [Concomitant]
     Active Substance: DEXCHLORPHENIRAMINE
     Dosage: 25 MILLILITER, 1 H BEFORE INFUSION
     Route: 048
  2. RISPERIDONE. [Concomitant]
     Active Substance: RISPERIDONE
     Indication: SOMNOLENCE
     Dosage: 1 MILLIGRAM, BID
     Route: 065
  3. RISPERIDONE. [Concomitant]
     Active Substance: RISPERIDONE
     Indication: AUTISM SPECTRUM DISORDER
  4. PARACETAMOL [Concomitant]
     Active Substance: ACETAMINOPHEN
     Dosage: 22 DROPS 1 H BEFORE INFUSION
     Route: 048
  5. IDURSULFASE [Suspect]
     Active Substance: IDURSULFASE
     Indication: MUCOPOLYSACCHARIDOSIS II
     Dosage: 2 DOSAGE FORM, 1/WEEK
     Route: 042
     Dates: start: 20201009, end: 20201127

REACTIONS (14)
  - Influenza like illness [Recovered/Resolved]
  - Weight decreased [Unknown]
  - Product availability issue [Unknown]
  - Respiratory disorder [Recovered/Resolved]
  - Fatigue [Unknown]
  - Infusion related hypersensitivity reaction [Recovered/Resolved]
  - Inappropriate schedule of product administration [Unknown]
  - Hospitalisation [Recovered/Resolved]
  - Infusion site pruritus [Recovered/Resolved]
  - Infusion site mass [Recovered/Resolved]
  - Injection site vesicles [Recovered/Resolved]
  - Rhinorrhoea [Unknown]
  - Agitation [Unknown]
  - Off label use [Unknown]

NARRATIVE: CASE EVENT DATE: 20201126
